FAERS Safety Report 23352296 (Version 1)
Quarter: 2023Q4

REPORT INFORMATION
  Report Type: Spontaneous
  Country: FR (occurrence: FR)
  Receive Date: 20231229
  Receipt Date: 20231229
  Transmission Date: 20240110
  Serious: Yes (Hospitalization)
  Sender: FDA-Public Use
  Company Number: None

PATIENT
  Age: 82 Year
  Sex: Male

DRUGS (3)
  1. ALPRAZOLAM [Interacting]
     Active Substance: ALPRAZOLAM
     Indication: Depression
     Dosage: 0.5 MILLIGRAM, QD
     Route: 048
     Dates: start: 2023, end: 20231115
  2. SKENAN [Interacting]
     Active Substance: MORPHINE SULFATE
     Indication: Pain
     Dosage: 60 MILLIGRAM, QD
     Route: 048
     Dates: end: 20231115
  3. MORPHINE SULFATE [Interacting]
     Active Substance: MORPHINE SULFATE
     Indication: Pain
     Dosage: 10 MILLIGRAM, QD
     Route: 048

REACTIONS (3)
  - Hypercapnia [Recovered/Resolved]
  - Respiratory acidosis [Recovered/Resolved]
  - Drug interaction [Recovered/Resolved]

NARRATIVE: CASE EVENT DATE: 20231114
